FAERS Safety Report 5461112-7 (Version None)
Quarter: 2007Q3

REPORT INFORMATION
  Report Type: 
  Country: None (occurrence: None)
  Receive Date: 20070920
  Receipt Date: 20070912
  Transmission Date: 20080115
  Serious: Yes (Other)
  Sender: FDA-Public Use
  Company Number: PHEH2007US12238

PATIENT
  Age: 62 Year
  Sex: Female
  Weight: 54.421 kg

DRUGS (6)
  1. AREDIA [Suspect]
     Indication: BREAST CANCER METASTATIC
     Dosage: 90MG Q4WKS
     Dates: start: 20070814
  2. TAMOXIFEN CITRATE [Concomitant]
  3. LASIX [Concomitant]
  4. RANITIDINE [Concomitant]
  5. PROCRIT [Concomitant]
  6. LEVOTHYROXINE SODIUM [Concomitant]

REACTIONS (5)
  - CELLULITIS [None]
  - CONJUNCTIVITIS [None]
  - DERMATITIS ALLERGIC [None]
  - ERYTHEMA [None]
  - EYE SWELLING [None]
